FAERS Safety Report 5910865-X (Version None)
Quarter: 2008Q4

REPORT INFORMATION
  Report Type: 
  Country: None (occurrence: None)
  Receive Date: 20081007
  Receipt Date: 20080530
  Transmission Date: 20090506
  Serious: Yes (Other)
  Sender: FDA-Public Use
  Company Number: US-ASTRAZENECA-2008UW11056

PATIENT
  Age: 78 Year
  Sex: Female

DRUGS (7)
  1. ARIMIDEX [Suspect]
     Route: 048
     Dates: start: 20080301
  2. VERAPAMIL [Concomitant]
  3. UREX [Concomitant]
  4. DIOVAN [Concomitant]
     Dosage: 160/12.5
  5. PAMELOR [Concomitant]
  6. OXYBUTYRIN [Concomitant]
  7. NEXIUM [Concomitant]
     Route: 048

REACTIONS (1)
  - LIVER FUNCTION TEST ABNORMAL [None]
